FAERS Safety Report 25920782 (Version 1)
Quarter: 2025Q4

REPORT INFORMATION
  Report Type: Spontaneous
  Country: CA (occurrence: CA)
  Receive Date: 20251014
  Receipt Date: 20251014
  Transmission Date: 20260119
  Serious: Yes (Death)
  Sender: REGENERON
  Company Number: CA-REGENERON PHARMACEUTICALS, INC.-2025-162771

PATIENT
  Age: 48 Year
  Sex: Male

DRUGS (13)
  1. LIBTAYO [Suspect]
     Active Substance: CEMIPLIMAB-RWLC
     Indication: Immunosuppression
     Dosage: UNK
  2. CAPECITABINE [Suspect]
     Active Substance: CAPECITABINE
     Indication: Metastases to central nervous system
     Dosage: UNK
  3. CARBOPLATIN [Suspect]
     Active Substance: CARBOPLATIN
     Indication: Product used for unknown indication
     Dosage: UNK, CYCLIC
  4. DEXAMETHASONE [Suspect]
     Active Substance: DEXAMETHASONE
     Indication: Immunosuppression
     Dosage: 4.0 MG, 1 EVERY 1 DAYS
     Route: 065
  5. ERBITUX [Suspect]
     Active Substance: CETUXIMAB
     Indication: Product used for unknown indication
     Dosage: UNK, CYCLIC
  6. FLUOROURACIL [Suspect]
     Active Substance: FLUOROURACIL
     Indication: Metastases to central nervous system
     Dosage: UNK
  7. MYCOPHENOLATE MOFETIL [Suspect]
     Active Substance: MYCOPHENOLATE MOFETIL
     Indication: Immunosuppression
     Dosage: 750.0 MG, 2 EVERY 1 DAYS
  8. MYCOPHENOLATE MOFETIL [Suspect]
     Active Substance: MYCOPHENOLATE MOFETIL
     Dosage: 750.0 MG, 2 EVERY 1 DAYS
  9. PACLITAXEL [Suspect]
     Active Substance: PACLITAXEL
     Indication: Product used for unknown indication
     Dosage: UNK, CYCLIC
  10. PREDNISONE [Suspect]
     Active Substance: PREDNISONE
     Indication: Immunosuppression
     Dosage: 5.0 MG, 1 EVERY 1 DAYS
  11. PREDNISONE [Suspect]
     Active Substance: PREDNISONE
     Dosage: 10.0 MG, 1 EVERY 1 DAYS
  12. SIROLIMUS [Suspect]
     Active Substance: SIROLIMUS
     Indication: Immunosuppression
     Dosage: UNK
  13. TACROLIMUS [Suspect]
     Active Substance: TACROLIMUS
     Indication: Immunosuppression
     Dosage: UNK

REACTIONS (2)
  - Haemorrhagic stroke [Fatal]
  - Off label use [Fatal]
